FAERS Safety Report 13988352 (Version 1)
Quarter: 2017Q3

REPORT INFORMATION
  Report Type: Spontaneous
  Country: CN (occurrence: CN)
  Receive Date: 20170919
  Receipt Date: 20170919
  Transmission Date: 20171128
  Serious: Yes (Death)
  Sender: FDA-Public Use
  Company Number: CN-PFIZER INC-2017404103

PATIENT

DRUGS (1)
  1. XALKORI [Suspect]
     Active Substance: CRIZOTINIB
     Dosage: 1 DF, 2X/DAY
     Route: 048
     Dates: start: 20170911

REACTIONS (2)
  - Muscular weakness [Unknown]
  - Death [Fatal]

NARRATIVE: CASE EVENT DATE: 20170911
